FAERS Safety Report 25141122 (Version 2)
Quarter: 2025Q2

REPORT INFORMATION
  Report Type: Spontaneous
  Country: US (occurrence: US)
  Receive Date: 20250331
  Receipt Date: 20250411
  Transmission Date: 20250716
  Serious: Yes (Death)
  Sender: EISAI
  Company Number: US-Eisai-EC-2025-186627

PATIENT
  Age: 77 Year
  Sex: Male
  Weight: 109.7 kg

DRUGS (1)
  1. LEQEMBI [Suspect]
     Active Substance: LECANEMAB-IRMB
     Indication: Cognitive disorder

REACTIONS (2)
  - Myocardial infarction [Fatal]
  - Pneumonia [Fatal]

NARRATIVE: CASE EVENT DATE: 20250218
